FAERS Safety Report 7237786-7 (Version None)
Quarter: 2011Q1

REPORT INFORMATION
  Report Type: 
  Country: None (occurrence: None)
  Receive Date: 20110113
  Receipt Date: 20110104
  Transmission Date: 20110831
  Serious: Yes (Hospitalization, Other)
  Sender: FDA-Public Use
  Company Number: 2010US004955

PATIENT
  Sex: Female
  Weight: 20 kg

DRUGS (10)
  1. PREDNISONE TAB [Concomitant]
  2. NIFEDIPINE [Concomitant]
  3. PROGRAF [Suspect]
     Indication: LIVER TRANSPLANT
     Dosage: 0.75 MG, Q12 HOURS, ORAL, 0.5 MG, UID/QD,  0.4 MG,  1 MG, Q12 HOURS
     Route: 048
     Dates: start: 20060101
  4. PROGRAF [Suspect]
     Indication: LIVER TRANSPLANT
     Dosage: 0.75 MG, Q12 HOURS, ORAL, 0.5 MG, UID/QD,  0.4 MG,  1 MG, Q12 HOURS
     Route: 048
     Dates: start: 20051031, end: 20060101
  5. ENALAPRIL MALEATE [Concomitant]
  6. ASPIRIN [Concomitant]
  7. PROGRAF [Suspect]
  8. URSO 250 [Concomitant]
  9. OMEPRAZOLE [Concomitant]
  10. COTRIM [Concomitant]

REACTIONS (3)
  - ACCIDENTAL OVERDOSE [None]
  - EPSTEIN-BARR VIRUS ASSOCIATED LYMPHOPROLIFERATIVE DISORDER [None]
  - EPSTEIN-BARR VIRUS INFECTION [None]
